FAERS Safety Report 9868005 (Version 1)
Quarter: 2014Q1

REPORT INFORMATION
  Report Type: Spontaneous
  Country: FR (occurrence: FR)
  Receive Date: 20140204
  Receipt Date: 20140204
  Transmission Date: 20141002
  Serious: Yes (Other)
  Sender: FDA-Public Use
  Company Number: FR-JNJFOC-20140118697

PATIENT
  Sex: Female

DRUGS (4)
  1. SIMPONI [Suspect]
     Indication: RHEUMATOID ARTHRITIS
     Dosage: 1 INJECTION PER MONTH
     Route: 058
     Dates: start: 20130130
  2. METHOTREXATE [Concomitant]
     Indication: RHEUMATOID ARTHRITIS
     Dosage: 6 TABLETS PER WEEK, INITIATED IN 2000
     Route: 065
     Dates: start: 2000
  3. CARDENSIEL [Concomitant]
     Route: 065
  4. COSOPT [Concomitant]
     Indication: ABNORMAL SENSATION IN EYE
     Route: 065

REACTIONS (1)
  - Visual acuity reduced [Unknown]
